FAERS Safety Report 6945880-0 (Version None)
Quarter: 2010Q3

REPORT INFORMATION
  Report Type: 
  Country: None (occurrence: None)
  Receive Date: 20100827
  Receipt Date: 20100816
  Transmission Date: 20110219
  Serious: Yes (Other)
  Sender: FDA-Public Use
  Company Number: PHHY2010US54312

PATIENT
  Sex: Male

DRUGS (4)
  1. RECLAST [Suspect]
  2. CALCIUM [Concomitant]
  3. VITAMIN D [Concomitant]
  4. ASPIRIN [Concomitant]
     Dosage: EVERY 4 TO 4.5 HOURS

REACTIONS (4)
  - LIMB DISCOMFORT [None]
  - MONOPLEGIA [None]
  - PYREXIA [None]
  - WHEELCHAIR USER [None]
